FAERS Safety Report 22137326 (Version 2)
Quarter: 2023Q1

REPORT INFORMATION
  Report Type: Spontaneous
  Country: US (occurrence: US)
  Receive Date: 20230325
  Receipt Date: 20230330
  Transmission Date: 20230418
  Serious: Yes (Hospitalization, Other)
  Sender: FDA-Public Use
  Company Number: US-MLMSERVICE-20230309-4155298-1

PATIENT
  Age: 25 Year
  Sex: Female

DRUGS (1)
  1. METOPROLOL [Suspect]
     Active Substance: METOPROLOL
     Indication: Atrial fibrillation
     Dosage: UNK
     Route: 065

REACTIONS (3)
  - Stevens-Johnson syndrome [Unknown]
  - Kounis syndrome [Unknown]
  - Coronary artery stenosis [Unknown]
